FAERS Safety Report 6375885-2 (Version None)
Quarter: 2009Q3

REPORT INFORMATION
  Report Type: 
  Country: None (occurrence: None)
  Receive Date: 20090921
  Receipt Date: 20090908
  Transmission Date: 20100115
  Serious: Yes (Other)
  Sender: FDA-Public Use
  Company Number: B0593393A

PATIENT
  Age: 1 Day
  Sex: Male

DRUGS (6)
  1. ZIDOVUDINE [Suspect]
     Indication: ANTIVIRAL PROPHYLAXIS
     Dosage: 300 MG / TWICE PER DAY / TRANSPLACEN
     Route: 064
  2. TENOFOVIR DISOPROXIL FUMARATE [Suspect]
     Indication: ANTIVIRAL PROPHYLAXIS
     Dosage: TRANSPLACENTARY
     Route: 064
  3. EMTRICITABINE (FORMULATION UNKNOWN) (EMTRICITABINE) [Suspect]
     Indication: ANTIVIRAL PROPHYLAXIS
     Dosage: TRANSPLACENTARY
     Route: 064
  4. NEVIRAPINE [Suspect]
     Indication: ANTIVIRAL PROPHYLAXIS
     Dosage: TRANSPLACENTARY
     Route: 064
  5. NEVIRAPINE [Concomitant]
  6. ZIDOVUDINE [Concomitant]

REACTIONS (5)
  - DEATH NEONATAL [None]
  - LARYNGOMALACIA [None]
  - MATERNAL DRUGS AFFECTING FOETUS [None]
  - NEONATAL RESPIRATORY DISTRESS SYNDROME [None]
  - NEUROLOGICAL SYMPTOM [None]
